FAERS Safety Report 17846107 (Version 4)
Quarter: 2021Q4

REPORT INFORMATION
  Report Type: Spontaneous
  Country: US (occurrence: US)
  Receive Date: 20200601
  Receipt Date: 20211130
  Transmission Date: 20220303
  Serious: Yes (Other)
  Sender: FDA-Public Use
  Company Number: US-PFIZER INC-2020213461

PATIENT
  Age: 81 Year
  Sex: Male

DRUGS (2)
  1. VYNDAMAX [Suspect]
     Active Substance: TAFAMIDIS
     Indication: Amyloidosis senile
     Dosage: 61 MG
  2. VYNDAMAX [Suspect]
     Active Substance: TAFAMIDIS
     Dosage: 80 MG

REACTIONS (16)
  - Hypothyroidism [Unknown]
  - Chronic kidney disease [Unknown]
  - Bronchiectasis [Unknown]
  - Off label use [Unknown]
  - Dyspnoea [Unknown]
  - Condition aggravated [Unknown]
  - Renal disorder [Unknown]
  - Ejection fraction decreased [Unknown]
  - Arrhythmia supraventricular [Unknown]
  - Memory impairment [Unknown]
  - Lumbar spinal stenosis [Recovering/Resolving]
  - Muscular weakness [Unknown]
  - Loss of libido [Unknown]
  - Chest X-ray abnormal [Unknown]
  - Pulmonary ossification [Unknown]
  - Bronchial disorder [Unknown]

NARRATIVE: CASE EVENT DATE: 20200615
